FAERS Safety Report 24946886 (Version 1)
Quarter: 2025Q1

REPORT INFORMATION
  Report Type: Spontaneous
  Country: FR (occurrence: FR)
  Receive Date: 20250210
  Receipt Date: 20250210
  Transmission Date: 20250408
  Serious: Yes (Hospitalization, Other)
  Sender: Haleon PLC
  Company Number: None

PATIENT
  Age: 90 Year
  Sex: Female
  Weight: 56.5 kg

DRUGS (1)
  1. ACETAMINOPHEN [Suspect]
     Active Substance: ACETAMINOPHEN
     Indication: Pain
     Route: 048
     Dates: start: 20250110, end: 20250110

REACTIONS (2)
  - Prothrombin time prolonged [Recovered/Resolved]
  - Hepatic cytolysis [Recovering/Resolving]

NARRATIVE: CASE EVENT DATE: 20250111
